FAERS Safety Report 8538922-2 (Version None)
Quarter: 2012Q3

REPORT INFORMATION
  Report Type: 
  Country: None (occurrence: None)
  Receive Date: 20120726
  Receipt Date: 20120719
  Transmission Date: 20120928
  Serious: Yes (Disabling, Other)
  Sender: FDA-Public Use
  Company Number: FR-BRISTOL-MYERS SQUIBB COMPANY-16583841

PATIENT
  Age: 51 Year
  Sex: Female

DRUGS (12)
  1. RISPERIDONE [Suspect]
     Indication: BIPOLAR DISORDER
     Dates: start: 19950101, end: 20110101
  2. GLUCOPHAGE [Suspect]
     Indication: DIABETES MELLITUS
     Dates: start: 20020101, end: 20110101
  3. REPAGLINIDE [Suspect]
     Indication: DIABETES MELLITUS
     Dates: start: 20020101, end: 20110101
  4. METFORMIN HCL [Suspect]
     Indication: DIABETES MELLITUS
     Dates: start: 20020101, end: 20110101
  5. ABILIFY [Suspect]
     Indication: BIPOLAR DISORDER
     Dosage: JUN2009,15MG/D
     Dates: start: 20090101, end: 20110101
  6. METFORMIN HYDROCHLORIDE [Suspect]
     Indication: DIABETES MELLITUS
     Dates: start: 20020101, end: 20110101
  7. DEPAKOTE [Suspect]
     Indication: BIPOLAR DISORDER
     Dosage: DEPAKOTE 500 MG
     Dates: start: 19950101, end: 20110101
  8. SITAGLIPTIN PHOSPHATE [Suspect]
     Indication: DIABETES MELLITUS
     Dosage: XELEVIA 100 MG XELEVIA 1000 MG
     Dates: start: 20020101, end: 20110101
  9. MEDIATOR [Suspect]
     Indication: DIABETES MELLITUS
     Dates: start: 20060101, end: 20090101
  10. DELURSAN [Concomitant]
     Dosage: 2DF IN MORNING AND EVENING
     Route: 048
     Dates: start: 20110318
  11. DIAMICRON [Suspect]
     Indication: DIABETES MELLITUS
     Dosage: DIAMICRON 60MG
     Dates: start: 20020101, end: 20110101
  12. GLUCOPHAGE [Suspect]
     Indication: DIABETES MELLITUS
     Dates: start: 20020101, end: 20110101

REACTIONS (5)
  - HEPATIC CIRRHOSIS [None]
  - FATIGUE [None]
  - HYPOTHERMIA [None]
  - EPISTAXIS [None]
  - ANAEMIA [None]
